FAERS Safety Report 7960318-2 (Version None)
Quarter: 2011Q4

REPORT INFORMATION
  Report Type: 
  Country: None (occurrence: None)
  Receive Date: 20111206
  Receipt Date: 20111206
  Transmission Date: 20120403
  Serious: Yes (Other)
  Sender: FDA-Public Use
  Company Number: PHHY2011DE099439

PATIENT

DRUGS (1)
  1. ILARIS [Suspect]
     Indication: CRYOPYRIN ASSOCIATED PERIODIC SYNDROME
     Dosage: 150 MG, FOR EVERY 8 WEEKS
     Route: 058

REACTIONS (3)
  - DRUG INEFFECTIVE [None]
  - RENAL IMPAIRMENT [None]
  - DISEASE PROGRESSION [None]
